FAERS Safety Report 8471228-9 (Version None)
Quarter: 2012Q2

REPORT INFORMATION
  Report Type: 
  Country: None (occurrence: None)
  Receive Date: 20120627
  Receipt Date: 20120619
  Transmission Date: 20120825
  Serious: Yes (Other)
  Sender: FDA-Public Use
  Company Number: DK-B.I. PHARMACEUTICALS,INC./RIDGEFIELD-2012-SW-00507DB

PATIENT
  Sex: Female
  Weight: 45 kg

DRUGS (4)
  1. PRADAXA [Suspect]
     Indication: THROMBOSIS PROPHYLAXIS
     Dosage: 220 MG
     Route: 048
     Dates: start: 20120608, end: 20120612
  2. DIGOXIN [Concomitant]
     Indication: ARRHYTHMIA
     Dates: start: 20010101
  3. ISODUR [Concomitant]
     Indication: ANGINA PECTORIS
     Dates: start: 20110516
  4. VERALOC [Concomitant]
     Indication: ARRHYTHMIA
     Dosage: PHARMACEUTICAL FORM: 245
     Route: 048
     Dates: start: 19990215

REACTIONS (3)
  - INSOMNIA [None]
  - FEELING ABNORMAL [None]
  - COGNITIVE DISORDER [None]
